FAERS Safety Report 7326239-3 (Version None)
Quarter: 2011Q1

REPORT INFORMATION
  Report Type: 
  Country: None (occurrence: None)
  Receive Date: 20110302
  Receipt Date: 20110221
  Transmission Date: 20110831
  Serious: Yes (Hospitalization)
  Sender: FDA-Public Use
  Company Number: A0914940A

PATIENT
  Sex: Male
  Weight: 85.9 kg

DRUGS (1)
  1. AVANDIA [Suspect]
     Dosage: 4MG PER DAY
     Route: 048
     Dates: start: 20050325, end: 20070716

REACTIONS (3)
  - HYPERTENSION [None]
  - HYPERLIPIDAEMIA [None]
  - HYPOGLYCAEMIA [None]
